FAERS Safety Report 20453869 (Version 1)
Quarter: 2022Q1

REPORT INFORMATION
  Report Type: Report from Study
  Country: RO (occurrence: RO)
  Receive Date: 20220210
  Receipt Date: 20220210
  Transmission Date: 20220424
  Serious: Yes (Death)
  Sender: FDA-Public Use
  Company Number: RO-SUN PHARMACEUTICAL INDUSTRIES LTD-2022R1-326106

PATIENT
  Age: 62 Year
  Sex: Male

DRUGS (7)
  1. METHYLPREDNISOLONE [Suspect]
     Active Substance: METHYLPREDNISOLONE
     Indication: Immunosuppressant drug therapy
     Dosage: UNK (7-5MG/KG FOR 3 DAYS)
     Route: 065
  2. PREDNISONE [Suspect]
     Active Substance: PREDNISONE
     Indication: Immunosuppressant drug therapy
     Dosage: UNK (0.5MG/KG TAPERED TO 0.25 MG/KG/DAY) BY 1 MONTH
     Route: 048
  3. PREDNISONE [Suspect]
     Active Substance: PREDNISONE
     Dosage: UNK,15 MG/DAY AT 3 MONTHS
     Route: 048
  4. PREDNISONE [Suspect]
     Active Substance: PREDNISONE
     Dosage: UNK,10 MG/DAY AT 4 MONTHS
     Route: 048
  5. PREDNISONE [Suspect]
     Active Substance: PREDNISONE
     Dosage: UNK, 5 MG/ DAY FROM 5 TO 12 MONTHS
     Route: 048
  6. AZATHIOPRINE [Suspect]
     Active Substance: AZATHIOPRINE
     Indication: Immunosuppressant drug therapy
     Dosage: 2 MILLIGRAM/KILOGRAM, DAILY
     Route: 065
  7. CYCLOPHOSPHAMIDE [Suspect]
     Active Substance: CYCLOPHOSPHAMIDE
     Indication: Immunosuppressant drug therapy
     Dosage: 500 MILLIGRAM/SQ. METER/ EVERY 4 WEEK
     Route: 065

REACTIONS (2)
  - Pneumonia pseudomonal [Fatal]
  - Septic shock [Fatal]
